FAERS Safety Report 7597099-0 (Version None)
Quarter: 2011Q3

REPORT INFORMATION
  Report Type: 
  Country: None (occurrence: None)
  Receive Date: 20110708
  Receipt Date: 20110704
  Transmission Date: 20111222
  Serious: Yes (Other)
  Sender: FDA-Public Use
  Company Number: GB-PFIZER INC-2011151571

PATIENT
  Age: 27 Year
  Sex: Male

DRUGS (1)
  1. KETAMINE HCL [Suspect]
     Dosage: UNK

REACTIONS (3)
  - CHOLESTASIS [None]
  - DRUG ABUSE [None]
  - BLADDER DISORDER [None]
